FAERS Safety Report 5072551-0 (Version None)
Quarter: 2006Q3

REPORT INFORMATION
  Report Type: 
  Country: None (occurrence: None)
  Receive Date: 20060801
  Receipt Date: 20060719
  Transmission Date: 20061208
  Serious: Yes (Death, Life-Threatening)
  Sender: FDA-Public Use
  Company Number: JP 050707170

PATIENT
  Age: 72 Year
  Sex: Female

DRUGS (2)
  1. GEMZAR [Suspect]
     Indication: PANCREATIC CARCINOMA STAGE IV
     Dosage: 500 MG/BODY, INTRAVENOUS
     Route: 042
     Dates: start: 20050511, end: 20050706
  2. THERAPEUTIC RADIOPHARMACEUTICALS [Concomitant]

REACTIONS (2)
  - MALIGNANT NEOPLASM PROGRESSION [None]
  - PNEUMONITIS [None]
